FAERS Safety Report 7403727-2 (Version None)
Quarter: 2011Q2

REPORT INFORMATION
  Report Type: 
  Country: None (occurrence: None)
  Receive Date: 20110408
  Receipt Date: 20110315
  Transmission Date: 20111010
  Serious: No
  Sender: FDA-Public Use
  Company Number: US-B.I. PHARMACEUTICALS,INC./RIDGEFIELD-2011-BP-08305BP

PATIENT
  Age: 74 Year
  Sex: Female

DRUGS (9)
  1. TRIAMTERENE HCT [Concomitant]
     Route: 048
  2. DIOVAN [Concomitant]
     Route: 048
  3. VERAPAMIL [Concomitant]
     Route: 048
  4. SPIRIVA [Concomitant]
     Route: 048
     Dates: start: 20090101
  5. SYMBICORT [Concomitant]
     Route: 048
  6. VYTORIN [Concomitant]
     Route: 048
  7. PRADAXA [Suspect]
     Indication: ATRIAL FIBRILLATION
     Dosage: 300 MG
     Route: 048
     Dates: start: 20110211, end: 20110313
  8. VENTOLIN [Concomitant]
     Indication: ASTHMA
     Route: 048
  9. ALLOPURINOL [Concomitant]
     Route: 048

REACTIONS (2)
  - FATIGUE [None]
  - CONTUSION [None]
